FAERS Safety Report 7798928-8 (Version None)
Quarter: 2011Q4

REPORT INFORMATION
  Report Type: 
  Country: None (occurrence: None)
  Receive Date: 20111006
  Receipt Date: 20111003
  Transmission Date: 20120403
  Serious: No
  Sender: FDA-Public Use
  Company Number: US-PFIZER INC-2011235908

PATIENT
  Sex: Female
  Weight: 63.492 kg

DRUGS (3)
  1. FISH OIL [Concomitant]
     Dosage: UNK
  2. LIPITOR [Suspect]
     Indication: BLOOD CHOLESTEROL INCREASED
     Dosage: 20 MG, 1X/DAY
     Route: 048
  3. NIACIN [Concomitant]
     Dosage: UNK

REACTIONS (1)
  - MUSCLE DISORDER [None]
